FAERS Safety Report 9104893 (Version 11)
Quarter: 2014Q4

REPORT INFORMATION
  Report Type: Spontaneous
  Country: US (occurrence: US)
  Receive Date: 20130220
  Receipt Date: 20141029
  Transmission Date: 20150529
  Serious: Yes (Death, Hospitalization, Other)
  Sender: FDA-Public Use
  Company Number: US-009507513-1302USA008547

PATIENT
  Sex: Female
  Weight: 47.62 kg

DRUGS (4)
  1. FOSAMAX [Suspect]
     Active Substance: ALENDRONATE SODIUM
     Dosage: 35 MG, QW
     Route: 048
  2. ALENDRONATE SODIUM. [Suspect]
     Active Substance: ALENDRONATE SODIUM
     Indication: OSTEOPOROSIS
     Dosage: 35 MG, QW
     Route: 048
     Dates: start: 20100615, end: 20110317
  3. ALENDRONATE SODIUM. [Suspect]
     Active Substance: ALENDRONATE SODIUM
     Dosage: 70 MG, UNK
  4. FOSAMAX [Suspect]
     Active Substance: ALENDRONATE SODIUM
     Indication: OSTEOPOROSIS
     Dosage: 70 MG, QW
     Route: 048
     Dates: start: 2003, end: 2008

REACTIONS (76)
  - Open reduction of fracture [Unknown]
  - Hypovolaemia [Recovered/Resolved]
  - Vitamin B12 deficiency [Unknown]
  - Cellulitis [Unknown]
  - Facial wasting [Unknown]
  - Osteoarthritis [Unknown]
  - Osteoarthritis [Unknown]
  - Aneurysm [Unknown]
  - Femoral neck fracture [Fatal]
  - Hip arthroplasty [Unknown]
  - Faecaloma [Recovering/Resolving]
  - Thoracotomy [Unknown]
  - Electrocardiogram low voltage [Unknown]
  - Sleep disorder [Unknown]
  - Infection [Unknown]
  - Fall [Unknown]
  - Osteopenia [Unknown]
  - Fall [Unknown]
  - Open reduction of fracture [Unknown]
  - Femur fracture [Unknown]
  - Femur fracture [Unknown]
  - Malnutrition [Fatal]
  - Urinary tract infection [Recovering/Resolving]
  - Stress fracture [Unknown]
  - Chronic obstructive pulmonary disease [Not Recovered/Not Resolved]
  - Anaemia of chronic disease [Unknown]
  - Pulmonary oedema [Unknown]
  - Decreased appetite [Unknown]
  - Pneumonia [Unknown]
  - Mental status changes [Recovered/Resolved]
  - Hypercapnia [Unknown]
  - Constipation [Unknown]
  - Rectal haemorrhage [Recovering/Resolving]
  - Renal failure [Recovered/Resolved]
  - Meningioma [Unknown]
  - Glaucoma [Unknown]
  - Dehydration [Unknown]
  - Haematocrit decreased [Unknown]
  - Scoliosis [Unknown]
  - Gastrooesophageal reflux disease [Unknown]
  - Arthralgia [Unknown]
  - Cardiac murmur [Unknown]
  - Pubis fracture [Unknown]
  - Enterococcal infection [Unknown]
  - Hydrocholecystis [Unknown]
  - Fall [Unknown]
  - Fall [Unknown]
  - Humerus fracture [Unknown]
  - Anaemia postoperative [Recovering/Resolving]
  - Hypertension [Unknown]
  - Blood urea nitrogen/creatinine ratio increased [Unknown]
  - Cachexia [Unknown]
  - Hip fracture [Unknown]
  - Hip fracture [Unknown]
  - Failure to thrive [Fatal]
  - Upper limb fracture [Unknown]
  - Asthenia [Fatal]
  - Low turnover osteopathy [Unknown]
  - Empyema [Unknown]
  - Wound infection [Unknown]
  - Leukocytosis [Unknown]
  - Hyperkalaemia [Unknown]
  - Pulmonary hypertension [Unknown]
  - Biliary dilatation [Unknown]
  - Shift to the left [Unknown]
  - Drug ineffective [Unknown]
  - Osteoporosis [Unknown]
  - Cardiac failure congestive [Unknown]
  - Rib fracture [Unknown]
  - Normochromic normocytic anaemia [Unknown]
  - Hypotension [Recovered/Resolved]
  - Haematoma [Unknown]
  - Pigmentation disorder [Unknown]
  - Dehydration [Unknown]
  - Laceration [Recovering/Resolving]
  - Constipation [Unknown]

NARRATIVE: CASE EVENT DATE: 2000
